FAERS Safety Report 8176214-4 (Version None)
Quarter: 2012Q1

REPORT INFORMATION
  Report Type: 
  Country: None (occurrence: None)
  Receive Date: 20120301
  Receipt Date: 20120118
  Transmission Date: 20120608
  Serious: Yes (Other)
  Sender: FDA-Public Use
  Company Number: CA-JNJFOC-20120206459

PATIENT
  Sex: Female
  Weight: 100 kg

DRUGS (7)
  1. ACETAMINOPHEN [Concomitant]
     Indication: PREMEDICATION
     Route: 065
  2. REMICADE [Suspect]
     Indication: CROHN'S DISEASE
     Route: 042
  3. SODIUM CHLORIDE [Concomitant]
     Dosage: 750 CC
     Route: 065
  4. REMICADE [Suspect]
     Route: 042
     Dates: start: 20110118, end: 20110118
  5. OXYGEN THERAPY [Concomitant]
     Route: 065
  6. BENADRYL [Concomitant]
     Route: 042
  7. SOLU-CORTEF [Concomitant]
     Indication: PREMEDICATION
     Route: 042

REACTIONS (5)
  - OXYGEN SATURATION DECREASED [None]
  - FLUSHING [None]
  - INFUSION RELATED REACTION [None]
  - COUGH [None]
  - DYSPNOEA [None]
